FAERS Safety Report 7059639-X (Version None)
Quarter: 2010Q4

REPORT INFORMATION
  Report Type: 
  Country: None (occurrence: None)
  Receive Date: 20101025
  Receipt Date: 20101012
  Transmission Date: 20110411
  Serious: No
  Sender: FDA-Public Use
  Company Number: US-ELI_LILLY_AND_COMPANY-US201008004812

PATIENT
  Sex: Female

DRUGS (1)
  1. ZYPREXA [Suspect]
     Indication: SCHIZOPHRENIA, PARANOID TYPE
     Dosage: 15 MG, DAILY (1/D)

REACTIONS (5)
  - AGGRESSION [None]
  - CRYING [None]
  - DRUG INEFFECTIVE [None]
  - MOOD ALTERED [None]
  - PARANOIA [None]
